FAERS Safety Report 17775158 (Version 1)
Quarter: 2020Q2

REPORT INFORMATION
  Report Type: Spontaneous
  Country: US (occurrence: US)
  Receive Date: 20200512
  Receipt Date: 20200512
  Transmission Date: 20200714
  Serious: Yes (Disabling)
  Sender: FDA-Public Use
  Company Number: None

PATIENT
  Age: 65 Year
  Sex: Female
  Weight: 57.6 kg

DRUGS (8)
  1. VITAMIN C [Concomitant]
     Active Substance: ASCORBIC ACID
  2. TUMERIC [Concomitant]
     Active Substance: HERBALS\TURMERIC
  3. VITAMIN B12 [Concomitant]
     Active Substance: CYANOCOBALAMIN
  4. PRAVASTATIN. [Concomitant]
     Active Substance: PRAVASTATIN
  5. VITAMIN D3 [Concomitant]
     Active Substance: CHOLECALCIFEROL
  6. MULTIVITAMIN [Concomitant]
     Active Substance: VITAMINS
  7. RECLAST [Suspect]
     Active Substance: ZOLEDRONIC ACID
     Indication: OSTEOPOROSIS
     Dosage: ?          OTHER FREQUENCY:ONCE A YEAR;?
     Route: 042
     Dates: start: 20200427, end: 20200427
  8. BIOTIN [Concomitant]
     Active Substance: BIOTIN

REACTIONS (24)
  - Chills [None]
  - Headache [None]
  - Pain [None]
  - Musculoskeletal stiffness [None]
  - Paraesthesia [None]
  - Decreased appetite [None]
  - Musculoskeletal disorder [None]
  - Seizure [None]
  - Pyrexia [None]
  - Hypoaesthesia [None]
  - Middle insomnia [None]
  - Asthenia [None]
  - Feeling cold [None]
  - Vomiting [None]
  - Nausea [None]
  - Musculoskeletal pain [None]
  - Dizziness [None]
  - Feeling hot [None]
  - Pruritus [None]
  - Hyperhidrosis [None]
  - Urine output decreased [None]
  - Infusion related reaction [None]
  - Arthralgia [None]
  - Peripheral swelling [None]

NARRATIVE: CASE EVENT DATE: 20200427
